FAERS Safety Report 5736716-4 (Version None)
Quarter: 2008Q2

REPORT INFORMATION
  Report Type: 
  Country: None (occurrence: None)
  Receive Date: 20080513
  Receipt Date: 20080508
  Transmission Date: 20081010
  Serious: Yes (Death, Hospitalization)
  Sender: FDA-Public Use
  Company Number: PHFR2008IE01292

PATIENT
  Age: 57 Year
  Sex: Female

DRUGS (16)
  1. ABILIFY [Concomitant]
     Indication: SCHIZOPHRENIA
     Dosage: 20MG / DAY
     Route: 048
     Dates: start: 20061212
  2. ALPRAZOLAM [Concomitant]
     Indication: ABNORMAL BEHAVIOUR
     Dosage: 0.25 MG, TID
     Route: 048
     Dates: start: 20040101
  3. CHLORPROMAZINE [Concomitant]
     Indication: SCHIZOPHRENIA
     Dosage: 100MG / DAY
     Route: 048
     Dates: end: 20080417
  4. DIFENE [Concomitant]
     Indication: PAIN
     Route: 065
     Dates: start: 20080401
  5. FOSAMAX [Concomitant]
     Indication: OSTEOPOROSIS
     Dosage: 70 MG, QW
     Dates: start: 20030101
  6. GALFER [Concomitant]
     Indication: IRON DEFICIENCY ANAEMIA
     Route: 065
     Dates: start: 20010101
  7. LANSOPRAZOLE [Concomitant]
     Indication: GASTRITIS
     Dosage: 30 MG, QD
     Route: 065
  8. PULMICORT [Concomitant]
     Indication: CHRONIC OBSTRUCTIVE PULMONARY DISEASE
     Dosage: 0.5 MG, BID
  9. ALBUTEROL [Concomitant]
     Indication: CHRONIC OBSTRUCTIVE PULMONARY DISEASE
     Dosage: 2.5 MG, BID
  10. SPIRIVA [Concomitant]
     Indication: CHRONIC OBSTRUCTIVE PULMONARY DISEASE
     Dosage: 18 UG, QD
  11. SERETIDE [Concomitant]
     Indication: CHRONIC OBSTRUCTIVE PULMONARY DISEASE
     Dosage: 500 UG, BID
  12. NULYTELY [Concomitant]
     Indication: CONSTIPATION
     Dosage: 2 SACHETS
     Route: 065
     Dates: start: 20050101
  13. LACTULOSE [Concomitant]
     Indication: CONSTIPATION
     Dosage: 15 ML, UNK
     Route: 048
  14. MICROLAX                                /DEN/ [Concomitant]
     Indication: CONSTIPATION
  15. OXYGEN [Concomitant]
     Indication: CHRONIC OBSTRUCTIVE PULMONARY DISEASE
  16. CLOZARIL [Suspect]
     Indication: SCHIZOPHRENIA
     Dosage: 500MG DAILY
     Route: 048
     Dates: start: 20050812

REACTIONS (5)
  - CHRONIC OBSTRUCTIVE PULMONARY DISEASE [None]
  - INTESTINAL OBSTRUCTION [None]
  - INTESTINAL PERFORATION [None]
  - MALAISE [None]
  - RENAL FAILURE ACUTE [None]
